FAERS Safety Report 5928464-2 (Version None)
Quarter: 2008Q4

REPORT INFORMATION
  Report Type: 
  Country: None (occurrence: None)
  Receive Date: 20081023
  Receipt Date: 20081017
  Transmission Date: 20090506
  Serious: Yes (Other)
  Sender: FDA-Public Use
  Company Number: US-JNJCH-2008052398

PATIENT
  Age: 40 Year
  Sex: Female

DRUGS (1)
  1. COOL MINT LISTERINE POCKETMIST [Suspect]
     Indication: BREATH ODOUR
     Dosage: TEXT:UNSPECIFIED
     Route: 048
     Dates: start: 20080601, end: 20080701

REACTIONS (1)
  - PALPITATIONS [None]
